FAERS Safety Report 5164171-4 (Version None)
Quarter: 2006Q4

REPORT INFORMATION
  Report Type: 
  Country: None (occurrence: None)
  Receive Date: 20060918
  Receipt Date: 20051115
  Transmission Date: 20070319
  Serious: Yes (Other)
  Sender: FDA-Public Use
  Company Number: US-JNJFOC-20051104693

PATIENT
  Age: 56 Year
  Sex: Female
  Weight: 145.151 kg

DRUGS (1)
  1. TOPAMAX [Suspect]
     Indication: NEUROPATHY
     Dosage: 200 MG, 1 IN 24 HOUR, ORAL;  100 MG, 2 IN 1 DAY, ORAL
     Route: 048
     Dates: start: 20051001

REACTIONS (4)
  - DYSGEUSIA [None]
  - INCREASED APPETITE [None]
  - NEUROPATHY PERIPHERAL [None]
  - WEIGHT DECREASED [None]
